FAERS Safety Report 8249288-X (Version None)
Quarter: 2012Q2

REPORT INFORMATION
  Report Type: 
  Country: None (occurrence: None)
  Receive Date: 20120402
  Receipt Date: 20120323
  Transmission Date: 20120825
  Serious: Yes (Other)
  Sender: FDA-Public Use
  Company Number: US-BAYER-2012-019842

PATIENT
  Age: 40 Year
  Sex: Female

DRUGS (4)
  1. YAZ [Suspect]
  2. DROSPIRENONE AND ETHINYL ESTRADIOL [Suspect]
  3. LISINOPRIL [Concomitant]
     Indication: HYPERTENSION
     Dosage: UNK
     Dates: start: 20091203
  4. YASMIN [Suspect]

REACTIONS (2)
  - PULMONARY EMBOLISM [None]
  - PAIN [None]
